FAERS Safety Report 9280520 (Version 1)
Quarter: 2013Q2

REPORT INFORMATION
  Report Type: Spontaneous
  Country: US (occurrence: US)
  Receive Date: 20130509
  Receipt Date: 20130509
  Transmission Date: 20140414
  Serious: No
  Sender: FDA-Public Use
  Company Number: US-009507513-1304USA017602

PATIENT
  Age: 50 Year
  Sex: Female

DRUGS (6)
  1. REBETOL [Suspect]
     Indication: HEPATITIS E
     Dosage: 200 MG, QD
     Route: 048
     Dates: start: 20111212
  2. SIROLIMUS [Concomitant]
  3. PREDNISONE [Concomitant]
  4. PANCRELIPASE [Concomitant]
  5. ASPIRIN [Concomitant]
  6. ESOMEPRAZOLE [Concomitant]

REACTIONS (2)
  - Transfusion [Unknown]
  - Anaemia [Unknown]
